FAERS Safety Report 6411270-2 (Version None)
Quarter: 2009Q4

REPORT INFORMATION
  Report Type: 
  Country: None (occurrence: None)
  Receive Date: 20091023
  Receipt Date: 20091013
  Transmission Date: 20100525
  Serious: Yes (Other)
  Sender: FDA-Public Use
  Company Number: TR-RANBAXY-2009RR-28612

PATIENT
  Age: 65 Year
  Sex: Female

DRUGS (4)
  1. OFLOXACIN [Suspect]
     Indication: TUBERCULOSIS
  2. ISONIAZID [Suspect]
     Indication: TUBERCULOSIS
  3. ETHAMBUTOL HYDROCHLORIDE [Suspect]
     Indication: TUBERCULOSIS
  4. STREPTOMYCIN [Suspect]
     Indication: TUBERCULOSIS

REACTIONS (1)
  - LICHEN PLANUS [None]
